FAERS Safety Report 4598298-2 (Version None)
Quarter: 2005Q1

REPORT INFORMATION
  Report Type: 
  Country: None (occurrence: None)
  Receive Date: 20050302
  Receipt Date: 20050302
  Transmission Date: 20050727
  Serious: Yes (Other)
  Sender: FDA-Public Use
  Company Number: None

PATIENT
  Age: 47 Year
  Sex: Male
  Weight: 77.1115 kg

DRUGS (3)
  1. LIPITOR [Suspect]
     Indication: BLOOD CHOLESTEROL INCREASED
     Dosage: 20MG DAILY  ORAL
     Route: 048
     Dates: start: 20000701
  2. LIPITOR [Suspect]
     Indication: LABORATORY TEST ABNORMAL
     Dosage: 20MG DAILY  ORAL
     Route: 048
     Dates: start: 20000701
  3. LIPITOR [Suspect]
     Indication: LDL/HDL RATIO
     Dosage: 20MG DAILY  ORAL
     Route: 048
     Dates: start: 20000701

REACTIONS (9)
  - AMNESIA [None]
  - COGNITIVE DISORDER [None]
  - DISTURBANCE IN ATTENTION [None]
  - DIZZINESS [None]
  - FATIGUE [None]
  - INSOMNIA [None]
  - MYALGIA [None]
  - VERTIGO [None]
  - VISUAL ACUITY REDUCED [None]
